FAERS Safety Report 24702107 (Version 2)
Quarter: 2024Q4

REPORT INFORMATION
  Report Type: Spontaneous
  Country: JP (occurrence: JP)
  Receive Date: 20241205
  Receipt Date: 20241226
  Transmission Date: 20250115
  Serious: Yes (Death)
  Sender: EISAI
  Company Number: JP-Eisai-202411580_LEN_P_1

PATIENT
  Age: 76 Year
  Sex: Female

DRUGS (4)
  1. LENVIMA [Suspect]
     Active Substance: LENVATINIB
     Indication: Anaplastic thyroid cancer
     Dosage: INCREASE OR DECREASE ACCORDINGLY
     Route: 048
  2. LENVIMA [Suspect]
     Active Substance: LENVATINIB
     Route: 048
  3. LENVIMA [Suspect]
     Active Substance: LENVATINIB
     Route: 048
  4. LENVIMA [Suspect]
     Active Substance: LENVATINIB
     Dosage: ADMINISTRATION OF 5-DOSE AND 2-INTERRUPTION
     Route: 048

REACTIONS (4)
  - Arterial haemorrhage [Fatal]
  - Platelet count decreased [Recovered/Resolved]
  - Decreased appetite [Recovered/Resolved]
  - Malaise [Recovered/Resolved]
